FAERS Safety Report 5377109-1 (Version None)
Quarter: 2007Q2

REPORT INFORMATION
  Report Type: 
  Country: None (occurrence: None)
  Receive Date: 20070628
  Receipt Date: 20070628
  Transmission Date: 20071010
  Serious: Yes (Hospitalization)
  Sender: FDA-Public Use
  Company Number: None

PATIENT
  Sex: Male
  Weight: 114 kg

DRUGS (16)
  1. IMATINIB MESYLATE [Suspect]
     Indication: MALIGNANT GLIOMA
     Dosage: 500 MG BID FOR 8 DAYS PO
     Route: 048
     Dates: start: 20060228, end: 20060307
  2. IMATINIB MESYLATE [Suspect]
     Indication: MALIGNANT GLIOMA
     Dosage: 500 MG BID FOR 8 DAYS PO
     Route: 048
     Dates: start: 20060408, end: 20060415
  3. TEMOZOLOMIDE [Suspect]
     Indication: MALIGNANT GLIOMA
     Dosage: 200 MG/M2, 150/M2 Q PM FOR 5 DAYS PO
     Route: 048
     Dates: start: 20060303, end: 20060307
  4. TEMOZOLOMIDE [Suspect]
     Indication: MALIGNANT GLIOMA
     Dosage: 200 MG/M2, 150/M2 Q PM FOR 5 DAYS PO
     Route: 048
     Dates: start: 20060411, end: 20060415
  5. FENTANYL TRANSDERMAL SYSTEM [Concomitant]
  6. LANTUS [Concomitant]
  7. PROVIGIL [Concomitant]
  8. TEMAZEPAM [Concomitant]
  9. METFORMIN [Concomitant]
  10. NEURONTIN [Concomitant]
  11. DECADRON [Concomitant]
  12. KEPPRA [Concomitant]
  13. LEXAPRO [Concomitant]
  14. PROTONIX [Concomitant]
  15. VICODIN [Concomitant]
  16. HUMULIN 70/30 [Concomitant]

REACTIONS (13)
  - BACTERIA STOOL IDENTIFIED [None]
  - BLOOD CULTURE POSITIVE [None]
  - CELLULITIS [None]
  - CLOSTRIDIAL INFECTION [None]
  - EMBOLISM [None]
  - ERYTHEMA [None]
  - FURUNCLE [None]
  - INFECTION [None]
  - MUSCULAR WEAKNESS [None]
  - NEOPLASM RECURRENCE [None]
  - POST PROCEDURAL HAEMORRHAGE [None]
  - STAPHYLOCOCCAL INFECTION [None]
  - THROMBOSIS [None]
